FAERS Safety Report 7550245-7 (Version None)
Quarter: 2011Q2

REPORT INFORMATION
  Report Type: 
  Country: None (occurrence: None)
  Receive Date: 20110615
  Receipt Date: 20110603
  Transmission Date: 20111010
  Serious: Yes (Other)
  Sender: FDA-Public Use
  Company Number: US-PFIZER INC-2011121779

PATIENT
  Sex: Female

DRUGS (1)
  1. PRISTIQ [Suspect]
     Dosage: UNK
     Route: 048

REACTIONS (5)
  - HALLUCINATION [None]
  - COORDINATION ABNORMAL [None]
  - HEARING IMPAIRED [None]
  - RESTLESSNESS [None]
  - VISUAL IMPAIRMENT [None]
